FAERS Safety Report 6468318-9 (Version None)
Quarter: 2009Q4

REPORT INFORMATION
  Report Type: 
  Country: None (occurrence: None)
  Receive Date: 20091203
  Receipt Date: 20091125
  Transmission Date: 20100525
  Serious: Yes (Disabling, Other)
  Sender: FDA-Public Use
  Company Number: US-AMGEN-QUU376826

PATIENT
  Sex: Female

DRUGS (1)
  1. ENBREL [Suspect]
     Indication: RHEUMATOID ARTHRITIS
     Route: 058
     Dates: start: 20011001

REACTIONS (5)
  - DEAFNESS UNILATERAL [None]
  - HALLUCINATION [None]
  - LABYRINTHITIS [None]
  - PYREXIA [None]
  - RHEUMATOID ARTHRITIS [None]
